FAERS Safety Report 4374778-X (Version None)
Quarter: 2004Q2

REPORT INFORMATION
  Report Type: 
  Country: None (occurrence: None)
  Receive Date: 20040604
  Receipt Date: 20040525
  Transmission Date: 20050107
  Serious: Yes (Other)
  Sender: FDA-Public Use
  Company Number: 206760

PATIENT
  Age: 66 Year
  Sex: Female
  Weight: 39.5 kg

DRUGS (5)
  1. RITUXIMAB (RITUXIMAB) CONC FOR SOLUTION FOR INFUSION [Suspect]
     Indication: LYMPHOMA
     Dosage: 500 MG, INTRAVENOUS
     Route: 042
     Dates: start: 20040426, end: 20040426
  2. DOXORUBICIN HCL [Concomitant]
  3. VINCRISTINE [Concomitant]
  4. CYCLOPHOSPHAMIDE [Concomitant]
  5. PREDNISONE TAB [Concomitant]

REACTIONS (1)
  - CEREBRAL INFARCTION [None]
